FAERS Safety Report 5884976-1 (Version None)
Quarter: 2008Q3

REPORT INFORMATION
  Report Type: 
  Country: None (occurrence: None)
  Receive Date: 20080916
  Receipt Date: 20080904
  Transmission Date: 20090109
  Serious: Yes (Death, Hospitalization)
  Sender: FDA-Public Use
  Company Number: FR-ROCHE-584776

PATIENT
  Sex: Female

DRUGS (7)
  1. ROCEPHIN [Suspect]
     Indication: URINARY TRACT INFECTION
     Dosage: FREQUENCY : QD
     Route: 042
     Dates: start: 20080225, end: 20080307
  2. LOVENOX [Suspect]
     Dosage: DOSAGE FORM : INJECTABLE SOLUTION FREQUENCY : 1 DOSE BID
     Route: 058
     Dates: start: 20080226, end: 20080310
  3. RISPERDAL [Suspect]
     Dosage: DOSAGE REGIMEN : 1-2 DOSE
     Route: 048
     Dates: start: 20080225, end: 20080305
  4. SEROPRAM [Suspect]
     Route: 042
     Dates: start: 20080225, end: 20080304
  5. SEROPRAM [Suspect]
     Route: 042
     Dates: start: 20080305, end: 20080308
  6. ZYPREXA [Suspect]
     Dosage: DRUG REPORTED : ZYPREXA VALOTAB FREQUENCY : QD
     Route: 048
     Dates: start: 20080304, end: 20080308
  7. TRIFLUCAN [Suspect]
     Dosage: DRUG WAS STARTED ON MARCH 2008
     Route: 048
     Dates: end: 20080310

REACTIONS (1)
  - HEPATITIS TOXIC [None]
